FAERS Safety Report 24344030 (Version 1)
Quarter: 2024Q3

REPORT INFORMATION
  Report Type: Spontaneous
  Country: NL (occurrence: NL)
  Receive Date: 20240920
  Receipt Date: 20240920
  Transmission Date: 20241017
  Serious: Yes (Congenital Anomaly, Other)
  Sender: RANBAXY
  Company Number: NL-SUN PHARMACEUTICAL INDUSTRIES LTD-2024RR-468792

PATIENT
  Sex: Male
  Weight: 3 kg

DRUGS (2)
  1. GANIRELIX [Suspect]
     Active Substance: GANIRELIX
     Indication: In vitro fertilisation
     Dosage: 1 DOSAGE FORM, DAILY
     Route: 065
     Dates: start: 20230515
  2. FOLLITROPIN [Suspect]
     Active Substance: FOLLITROPIN
     Indication: In vitro fertilisation
     Dosage: 1 DOSAGE FORM, DAILY
     Route: 064
     Dates: start: 20230511

REACTIONS (2)
  - VACTERL syndrome [Not Recovered/Not Resolved]
  - Maternal exposure during pregnancy [Unknown]

NARRATIVE: CASE EVENT DATE: 20231210
